FAERS Safety Report 5688085-6 (Version None)
Quarter: 2008Q1

REPORT INFORMATION
  Report Type: 
  Country: None (occurrence: None)
  Receive Date: 20080327
  Receipt Date: 20080314
  Transmission Date: 20080703
  Serious: Yes (Other)
  Sender: FDA-Public Use
  Company Number: 2008-00875

PATIENT
  Age: 61 Year
  Sex: Male
  Weight: 85.6 kg

DRUGS (2)
  1. VELCADE [Suspect]
     Indication: SQUAMOUS CELL CARCINOMA
     Dosage: 1.30 MG/M2, IV BOLUS
     Route: 040
     Dates: start: 20060629, end: 20060710
  2. IRINOTECAN     (IRIOTECAN) VIAL [Suspect]
     Indication: SQUAMOUS CELL CARCINOMA
     Dosage: 125.00 MG/M2, INTRAVENOUS
     Route: 042

REACTIONS (4)
  - DEHYDRATION [None]
  - GINGIVITIS [None]
  - INFECTION [None]
  - ORAL CANDIDIASIS [None]
